FAERS Safety Report 19687085 (Version 1)
Quarter: 2021Q3

REPORT INFORMATION
  Report Type: Report from Study
  Country: JP (occurrence: JP)
  Receive Date: 20210811
  Receipt Date: 20210811
  Transmission Date: 20211014
  Serious: Yes (Death, Hospitalization)
  Sender: FDA-Public Use
  Company Number: JP-TEVA-2021-JP-1940330

PATIENT
  Age: 73 Year
  Sex: Male

DRUGS (1)
  1. PREDNISOLONE. [Suspect]
     Active Substance: PREDNISOLONE
     Indication: RHEUMATOID ARTHRITIS
     Dosage: 15 MILLIGRAM DAILY;
     Route: 065

REACTIONS (3)
  - Pulmonary nocardiosis [Fatal]
  - Respiratory failure [Fatal]
  - Cutaneous nocardiosis [Fatal]
